FAERS Safety Report 4999977-5 (Version None)
Quarter: 2006Q2

REPORT INFORMATION
  Report Type: 
  Country: None (occurrence: None)
  Receive Date: 20060509
  Receipt Date: 20060509
  Transmission Date: 20061013
  Serious: Yes (Death)
  Sender: FDA-Public Use
  Company Number: None

PATIENT
  Age: 54 Year
  Sex: Female

DRUGS (5)
  1. ALBUTEROL SULFATE AUTOHALER [Suspect]
     Indication: DYSPNOEA
     Dosage: 0.5CCMG NEB X 1
     Route: 055
  2. IPRATROPIUM BROMIDE [Suspect]
     Dosage: 0.5MG NEB
     Route: 055
  3. PREVACID [Concomitant]
  4. TPN [Concomitant]
  5. BACTRIM [Concomitant]

REACTIONS (4)
  - AGITATION [None]
  - CONDITION AGGRAVATED [None]
  - HEART RATE INCREASED [None]
  - WHEEZING [None]
